FAERS Safety Report 4361382-2 (Version None)
Quarter: 2004Q2

REPORT INFORMATION
  Report Type: 
  Country: None (occurrence: None)
  Receive Date: 20040521
  Receipt Date: 20040513
  Transmission Date: 20050107
  Serious: Yes (Other)
  Sender: FDA-Public Use
  Company Number: PHEH2004US05315

PATIENT
  Age: 43 Year
  Sex: Female

DRUGS (1)
  1. LAMISIL [Suspect]
     Indication: FUNGAL INFECTION
     Dosage: 250 MG, ONCE/SINGLE
     Route: 048

REACTIONS (4)
  - PRURITUS [None]
  - URTICARIA [None]
  - VISUAL DISTURBANCE [None]
  - VISUAL FIELD DEFECT [None]
